FAERS Safety Report 14947278 (Version 2)
Quarter: 2018Q2

REPORT INFORMATION
  Report Type: Spontaneous
  Country: US (occurrence: US)
  Receive Date: 20180529
  Receipt Date: 20180613
  Transmission Date: 20180711
  Serious: No
  Sender: FDA-Public Use
  Company Number: US-009507513-1805USA010386

PATIENT
  Age: 21 Year
  Sex: Female
  Weight: 50.79 kg

DRUGS (2)
  1. NEXPLANON [Suspect]
     Active Substance: ETONOGESTREL
     Dosage: A NEW NEXPLANON IN THE SAME SITE
     Dates: start: 20180518
  2. NEXPLANON [Suspect]
     Active Substance: ETONOGESTREL
     Indication: CONTRACEPTION
     Dosage: 1 ROD (68 MG) ONCE
     Route: 059
     Dates: start: 20180518

REACTIONS (3)
  - Device deployment issue [Recovered/Resolved]
  - Product quality issue [Unknown]
  - Complication of device insertion [Recovered/Resolved]

NARRATIVE: CASE EVENT DATE: 20180518
